FAERS Safety Report 4485663-7 (Version None)
Quarter: 2004Q4

REPORT INFORMATION
  Report Type: 
  Country: None (occurrence: None)
  Receive Date: 20041026
  Receipt Date: 20041021
  Transmission Date: 20050328
  Serious: Yes (Other)
  Sender: FDA-Public Use
  Company Number: US-MERCK-0410USA03415

PATIENT
  Age: 66 Year
  Sex: Female

DRUGS (14)
  1. VIOXX [Suspect]
     Indication: BACK PAIN
     Route: 048
     Dates: start: 20040419, end: 20040429
  2. NEXIUM [Concomitant]
     Route: 065
  3. SYNTHROID [Concomitant]
     Route: 065
  4. COREG [Concomitant]
     Route: 065
  5. BUSPIRONE HYDROCHLORIDE [Concomitant]
     Route: 065
  6. PLAVIX [Concomitant]
     Route: 065
  7. PRINIVIL [Concomitant]
     Route: 065
  8. PROVIGIL [Concomitant]
     Route: 065
  9. ACTONEL [Concomitant]
     Route: 065
  10. ELAVIL [Concomitant]
     Route: 065
  11. ALPRAZOLAM [Concomitant]
     Route: 065
  12. ZOCOR [Concomitant]
     Route: 065
  13. DETROL [Concomitant]
     Route: 065
  14. MECLIZINE [Concomitant]
     Route: 065

REACTIONS (3)
  - CEREBROVASCULAR ACCIDENT [None]
  - FLUID RETENTION [None]
  - OEDEMA PERIPHERAL [None]
